FAERS Safety Report 5897586-7 (Version None)
Quarter: 2008Q3

REPORT INFORMATION
  Report Type: 
  Country: None (occurrence: None)
  Receive Date: 20080923
  Receipt Date: 20080915
  Transmission Date: 20090109
  Serious: Yes (Disabling, Other)
  Sender: FDA-Public Use
  Company Number: GXKR2008NO08986

PATIENT
  Age: 73 Year
  Sex: Male

DRUGS (9)
  1. SIMVASTATIN [Suspect]
     Dosage: ORAL
     Route: 048
  2. CANDESARTAN W.HYDROCHLOROTHIAZIDE (CANDEESARTAN, HYDROCHLOROTHIAZIDE) [Suspect]
     Indication: HYPERTENSION
     Dosage: 16 MG + 12.5MG/DAY, ORAL
     Route: 048
  3. PLAVIX [Concomitant]
  4. NEXIUM [Concomitant]
  5. CARDURAN (DOXAZOSIN MESILATE) [Concomitant]
  6. BUMETANIDE [Concomitant]
  7. ALBYL-E (ACETYLSALICYLIC ACID, MAGNESIUM OXIDE) [Concomitant]
  8. AMLODIPINE (AMLODIPINE) [Concomitant]
  9. METOPROLOL SUCCINATE [Concomitant]

REACTIONS (4)
  - CONDITION AGGRAVATED [None]
  - DRUG HYPERSENSITIVITY [None]
  - DYSPNOEA [None]
  - INTERSTITIAL LUNG DISEASE [None]
